FAERS Safety Report 10101393 (Version 1)
Quarter: 2014Q2

REPORT INFORMATION
  Report Type: Spontaneous
  Country: US (occurrence: US)
  Receive Date: 20140424
  Receipt Date: 20140424
  Transmission Date: 20141212
  Serious: No
  Sender: FDA-Public Use
  Company Number: US-PFIZER INC-2014110414

PATIENT
  Age: 2 Year
  Sex: Female
  Weight: 14.06 kg

DRUGS (1)
  1. CHILDRENS ADVIL [Suspect]
     Indication: PYREXIA
     Dosage: UNK, DAILY
     Dates: start: 20140416, end: 20140417

REACTIONS (3)
  - Urticaria [Not Recovered/Not Resolved]
  - Eye swelling [Not Recovered/Not Resolved]
  - Erythema [Not Recovered/Not Resolved]
